FAERS Safety Report 21634052 (Version 2)
Quarter: 2023Q2

REPORT INFORMATION
  Report Type: Report from Study
  Country: BE (occurrence: BE)
  Receive Date: 20221123
  Receipt Date: 20230419
  Transmission Date: 20230721
  Serious: Yes (Hospitalization, Other)
  Sender: FDA-Public Use
  Company Number: BE-ROCHE-3214426

PATIENT
  Age: 86 Year
  Sex: Female
  Weight: 50.8 kg

DRUGS (12)
  1. RITUXIMAB [Suspect]
     Active Substance: RITUXIMAB
     Indication: Splenic marginal zone lymphoma
     Dosage: 375 MG/M2, CYCLIC (550.11MG) (DAYS1,8,15,22 IN CYCLE1 THEN DAY1 EVERY 28DAY CYCLE FROM CYCLE 2TO5)
     Route: 042
     Dates: start: 20211022
  2. RITUXIMAB [Suspect]
     Active Substance: RITUXIMAB
     Dosage: 375 MG/M2, CYCLIC (550.11MG) (DAYS1,8,15,22 IN CYCLE1 THEN DAY1 EVERY 28DAY CYCLE FROM CYCLE 2TO5)
     Route: 042
     Dates: start: 20211105
  3. RITUXIMAB [Suspect]
     Active Substance: RITUXIMAB
     Dosage: 375 MG/M2, CYCLIC (550.11MG) (DAYS1,8,15,22 IN CYCLE1 THEN DAY1 EVERY 28DAY CYCLE FROM CYCLE 2TO5)
     Route: 042
     Dates: start: 20211118
  4. TAFASITAMAB-CXIX [Suspect]
     Active Substance: TAFASITAMAB-CXIX
     Indication: Splenic marginal zone lymphoma
     Dosage: UNK, ON DAYS 1, 8, 15 AND 22 OF CYCLES 1 TO 3 THEN DAYS 1 AND 15 OF CYCLES 4 TO 12
     Route: 048
     Dates: start: 20211022
  5. TAFASITAMAB-CXIX [Suspect]
     Active Substance: TAFASITAMAB-CXIX
     Dosage: UNK, ON DAYS 1, 8, 15 AND 22 OF CYCLES 1 TO 3 THEN DAYS 1 AND 15 OF CYCLES 4 TO 12
     Route: 048
     Dates: start: 20211105
  6. TAFASITAMAB-CXIX [Suspect]
     Active Substance: TAFASITAMAB-CXIX
     Dosage: UNK, ON DAYS 1, 8, 15 AND 22 OF CYCLES 1 TO 3 THEN DAYS 1 AND 15 OF CYCLES 4 TO 12
     Route: 048
     Dates: start: 20211118
  7. TAFASITAMAB-CXIX [Suspect]
     Active Substance: TAFASITAMAB-CXIX
     Dosage: UNK, ON DAYS 1, 8, 15 AND 22 OF CYCLES 1 TO 3 THEN DAYS 1 AND 15 OF CYCLES 4 TO 12
     Route: 048
     Dates: start: 20211125
  8. LENALIDOMIDE [Suspect]
     Active Substance: LENALIDOMIDE
     Indication: Splenic marginal zone lymphoma
     Dosage: 20 MG, 1X/DAY (ON DAYS 1 TO 21 OF EVERY 28 DAY CYCLE FOR 12 CYCLES)
     Route: 042
     Dates: start: 20211022
  9. LENALIDOMIDE [Suspect]
     Active Substance: LENALIDOMIDE
     Dosage: 20 MG, 1X/DAY (ON DAYS 1 TO 21 OF EVERY 28 DAY CYCLE FOR 12 CYCLES)
     Route: 042
     Dates: start: 20211105
  10. LENALIDOMIDE [Suspect]
     Active Substance: LENALIDOMIDE
     Dosage: 20 MG, 1X/DAY (ON DAYS 1 TO 21 OF EVERY 28 DAY CYCLE FOR 12 CYCLES)
     Route: 042
     Dates: start: 20211110
  11. LENALIDOMIDE [Suspect]
     Active Substance: LENALIDOMIDE
     Dosage: 20 MG, 1X/DAY (ON DAYS 1 TO 21 OF EVERY 28 DAY CYCLE FOR 12 CYCLES)
     Route: 042
     Dates: start: 20211111
  12. LENALIDOMIDE [Suspect]
     Active Substance: LENALIDOMIDE
     Dosage: 20 MG, 1X/DAY (ON DAYS 1 TO 21 OF EVERY 28 DAY CYCLE FOR 12 CYCLES)
     Route: 042
     Dates: start: 20211125

REACTIONS (5)
  - Pleural effusion [Recovered/Resolved]
  - Pneumonia [Recovered/Resolved]
  - Gastroenteritis [Recovered/Resolved]
  - Pyrexia [Recovered/Resolved]
  - Pyrexia [Recovered/Resolved]

NARRATIVE: CASE EVENT DATE: 20211106
